FAERS Safety Report 4666060-8 (Version None)
Quarter: 2005Q2

REPORT INFORMATION
  Report Type: 
  Country: None (occurrence: None)
  Receive Date: 20050519
  Receipt Date: 20050504
  Transmission Date: 20051028
  Serious: Yes (Hospitalization)
  Sender: FDA-Public Use
  Company Number: US-ROCHE-404024

PATIENT
  Age: 48 Year
  Sex: Male

DRUGS (4)
  1. XELODA [Suspect]
     Dosage: THE PATIENT HAD RECEIVED FOUR CYCLES OF CAPECITABINE.TWO WEEKS TREATMENT FOLLOWED BY ONE WEEKS REST
     Route: 065
     Dates: start: 20041215, end: 20050413
  2. OXYCONTIN [Concomitant]
  3. PAXIL [Concomitant]
  4. PROTONIX [Concomitant]

REACTIONS (5)
  - AMNESIA [None]
  - BLINDNESS [None]
  - CONVULSION [None]
  - COORDINATION ABNORMAL [None]
  - ENCEPHALOPATHY [None]
